FAERS Safety Report 19985587 (Version 1)
Quarter: 2021Q4

REPORT INFORMATION
  Report Type: Report from Study
  Country: None (occurrence: US)
  Receive Date: 20211021
  Receipt Date: 20211021
  Transmission Date: 20220303
  Serious: Yes (Other)
  Sender: FDA-Public Use
  Company Number: US-ABBVIE-21K-163-4121024-00

PATIENT
  Age: 49 Year
  Sex: Female

DRUGS (3)
  1. RINVOQ [Suspect]
     Active Substance: UPADACITINIB
     Indication: Rheumatoid arthritis
     Route: 048
  2. MODERNA COVID-19 VACCINE [Concomitant]
     Active Substance: CX-024414
     Indication: COVID-19 immunisation
     Dates: start: 202103, end: 202103
  3. MODERNA COVID-19 VACCINE [Concomitant]
     Active Substance: CX-024414
     Dates: start: 20210404, end: 20210404

REACTIONS (3)
  - Epidural injection [Not Recovered/Not Resolved]
  - Nerve compression [Unknown]
  - Intervertebral disc protrusion [Unknown]

NARRATIVE: CASE EVENT DATE: 20211011
